FAERS Safety Report 9723375 (Version 1)
Quarter: 2013Q4

REPORT INFORMATION
  Report Type: Spontaneous
  Country: US (occurrence: US)
  Receive Date: 20131202
  Receipt Date: 20131202
  Transmission Date: 20140711
  Serious: No
  Sender: FDA-Public Use
  Company Number: US-GLAXOSMITHKLINE-A1043352A

PATIENT
  Age: 65 Year
  Sex: Female

DRUGS (4)
  1. FLONASE [Suspect]
     Indication: PRODUCT USED FOR UNKNOWN INDICATION
     Dosage: 50MCG UNKNOWN
     Route: 045
     Dates: start: 20090406
  2. WELLBUTRIN SR [Suspect]
     Indication: DEPRESSION
     Dosage: 200MG UNKNOWN
     Route: 065
     Dates: start: 20130406
  3. WELLBUTRIN [Suspect]
     Indication: PRODUCT USED FOR UNKNOWN INDICATION
  4. ALBUTEROL [Concomitant]
     Route: 055

REACTIONS (4)
  - Sinus disorder [Unknown]
  - Ear disorder [Unknown]
  - Cold sweat [Unknown]
  - Drug administration error [Unknown]
